FAERS Safety Report 18667073 (Version 1)
Quarter: 2020Q4

REPORT INFORMATION
  Report Type: Spontaneous
  Country: FR (occurrence: FR)
  Receive Date: 20201228
  Receipt Date: 20201228
  Transmission Date: 20210114
  Serious: Yes (Hospitalization)
  Sender: FDA-Public Use
  Company Number: FR-SUN PHARMACEUTICAL INDUSTRIES LTD-2020RR-272707

PATIENT
  Age: 64 Year
  Sex: Male
  Weight: 72.6 kg

DRUGS (6)
  1. FLUOXETINE [Suspect]
     Active Substance: FLUOXETINE HYDROCHLORIDE
     Indication: FLAT AFFECT
     Dosage: 40 MILLIGRAM, DAILY
     Route: 048
     Dates: start: 202004
  2. BACLOFENE [Suspect]
     Active Substance: BACLOFEN
     Indication: HEMIPLEGIA
     Dosage: 70 MILLIGRAM, DAILY
     Route: 048
     Dates: start: 202005
  3. XATRAL LP 10 MG, COMPRIME A LIBERATION PROLONGEE [Concomitant]
     Active Substance: ALFUZOSIN
     Indication: PRODUCT USED FOR UNKNOWN INDICATION
     Dosage: 1 DOSAGE FORM, DAILY
     Route: 048
     Dates: start: 202009
  4. BOTOX [Suspect]
     Active Substance: ONABOTULINUMTOXINA
     Indication: HEMIPLEGIA
     Dosage: 250 INTERNATIONAL UNIT, IN TOTAL
     Route: 030
     Dates: start: 20201118, end: 20201118
  5. TAHOR [Concomitant]
     Active Substance: ATORVASTATIN CALCIUM
     Indication: PROPHYLAXIS
     Dosage: 1 DOSAGE FORM, DAILY
     Route: 048
     Dates: start: 202004
  6. GABAPENTIN. [Suspect]
     Active Substance: GABAPENTIN
     Indication: NEURALGIA
     Dosage: 1200 MILLIGRAM, DAILY
     Route: 048
     Dates: start: 2020

REACTIONS (1)
  - Status epilepticus [Recovering/Resolving]

NARRATIVE: CASE EVENT DATE: 20201119
